FAERS Safety Report 5196928-8 (Version None)
Quarter: 2006Q4

REPORT INFORMATION
  Report Type: 
  Country: None (occurrence: None)
  Receive Date: 20061227
  Receipt Date: 20061218
  Transmission Date: 20070319
  Serious: Yes (Other)
  Sender: FDA-Public Use
  Company Number: 2006154475

PATIENT

DRUGS (1)
  1. LIPITOR [Suspect]
     Dosage: (80 MG)

REACTIONS (2)
  - CONFUSIONAL STATE [None]
  - DEMENTIA [None]
